FAERS Safety Report 10234204 (Version 2)
Quarter: 2014Q2

REPORT INFORMATION
  Report Type: Spontaneous
  Country: US (occurrence: US)
  Receive Date: 20140612
  Receipt Date: 20140624
  Transmission Date: 20141212
  Serious: Yes (Hospitalization)
  Sender: FDA-Public Use
  Company Number: US-FRI-1000068061

PATIENT
  Age: 57 Year
  Sex: Female
  Weight: 63 kg

DRUGS (13)
  1. NAMENDA XR [Suspect]
     Indication: DEMENTIA ALZHEIMER^S TYPE
     Dosage: 28 MG
     Route: 048
     Dates: start: 20140514, end: 20140601
  2. NAMENDA XR [Suspect]
     Indication: ANXIETY
  3. NAMENDA XR [Suspect]
     Indication: DEPRESSION
  4. NAMENDA [Suspect]
     Indication: DEMENTIA ALZHEIMER^S TYPE
     Dosage: 5 MG
     Route: 048
     Dates: start: 20140416, end: 20140422
  5. NAMENDA [Suspect]
     Indication: ANXIETY
     Dosage: 10 MG
     Route: 048
     Dates: start: 20140423, end: 20140429
  6. NAMENDA [Suspect]
     Indication: DEPRESSION
     Dosage: 10 MG AM, 5 MG PM
     Route: 048
     Dates: start: 20140430, end: 20140506
  7. NAMENDA [Suspect]
     Dosage: 10 MG
     Route: 048
     Dates: start: 20140507, end: 20140513
  8. ESCITALOPRAM [Suspect]
     Indication: DEPRESSION
     Dosage: 5 MG
     Route: 048
     Dates: start: 20140501, end: 20140601
  9. ESCITALOPRAM [Suspect]
     Indication: ANXIETY
  10. VIMPAT [Suspect]
     Indication: CONVULSION
     Dosage: 50 MG
     Dates: start: 20140601, end: 20140601
  11. VIMPAT [Suspect]
     Dosage: 100 MG
     Dates: start: 20140602, end: 20140602
  12. VIMPAT [Suspect]
     Indication: CONVULSION
     Dosage: 50 MG
     Dates: start: 20140603, end: 20140603
  13. VIMPAT [Suspect]
     Dosage: 200 MG
     Dates: start: 20140604

REACTIONS (3)
  - Convulsion [Recovered/Resolved]
  - Tremor [Recovered/Resolved]
  - Off label use [Recovered/Resolved]
